FAERS Safety Report 12791744 (Version 2)
Quarter: 2016Q4

REPORT INFORMATION
  Report Type: Report from Study
  Country: US (occurrence: US)
  Receive Date: 20160929
  Receipt Date: 20161024
  Transmission Date: 20170207
  Serious: Yes (Other)
  Sender: FDA-Public Use
  Company Number: PHEH2016US024301

PATIENT
  Sex: Female

DRUGS (1)
  1. TASIGNA [Suspect]
     Active Substance: NILOTINIB
     Indication: PRODUCT USED FOR UNKNOWN INDICATION
     Dosage: 200 MG, BID
     Route: 048

REACTIONS (18)
  - Leukaemia [Unknown]
  - Alopecia [Unknown]
  - Cataract [Recovering/Resolving]
  - Visual acuity reduced [Not Recovered/Not Resolved]
  - Skin papilloma [Unknown]
  - Incontinence [Unknown]
  - Movement disorder [Unknown]
  - Vision blurred [Unknown]
  - Myocardial infarction [Unknown]
  - Eye disorder [Unknown]
  - Arthropathy [Unknown]
  - Hypoacusis [Unknown]
  - Deafness [Unknown]
  - Memory impairment [Unknown]
  - Back disorder [Unknown]
  - Arthritis [Unknown]
  - Blindness [Unknown]
  - Aphasia [Unknown]
